FAERS Safety Report 15248366 (Version 2)
Quarter: 2018Q4

REPORT INFORMATION
  Report Type: Report from Study
  Country: US (occurrence: US)
  Receive Date: 20180807
  Receipt Date: 20181206
  Transmission Date: 20190204
  Serious: No
  Sender: FDA-Public Use
  Company Number: US-SA-2018SA207230

PATIENT
  Age: 78 Year
  Sex: Male

DRUGS (1)
  1. INSULIN GLARGINE/LIXISENATIDE [Suspect]
     Active Substance: INSULIN GLARGINE\LIXISENATIDE
     Indication: TYPE 2 DIABETES MELLITUS
     Dosage: 35 IU, QD
     Route: 058

REACTIONS (6)
  - Product dose omission [Unknown]
  - Memory impairment [Recovering/Resolving]
  - Injection site haemorrhage [Unknown]
  - Tremor [Not Recovered/Not Resolved]
  - Underdose [Unknown]
  - Hypoacusis [Not Recovered/Not Resolved]
